FAERS Safety Report 19178952 (Version 1)
Quarter: 2021Q2

REPORT INFORMATION
  Report Type: Spontaneous
  Country: US (occurrence: US)
  Receive Date: 20210423
  Receipt Date: 20210423
  Transmission Date: 20210717
  Serious: Yes (Hospitalization)
  Sender: FDA-Public Use
  Company Number: None

PATIENT
  Sex: Female

DRUGS (1)
  1. CAPECITABINE 500MG NOVADOZ PHARMACEUTICALS [Suspect]
     Active Substance: CAPECITABINE
     Indication: LUNG NEOPLASM
     Dosage: ?          OTHER FREQUENCY:2X DAILY, 7 DAYS ;?
     Route: 048
     Dates: start: 20200423

REACTIONS (2)
  - Product distribution issue [None]
  - Thoracic cavity drainage [None]
